FAERS Safety Report 4273782-X (Version None)
Quarter: 2004Q1

REPORT INFORMATION
  Report Type: 
  Country: None (occurrence: None)
  Receive Date: 20040114
  Receipt Date: 20031229
  Transmission Date: 20041129
  Serious: Yes (Hospitalization)
  Sender: FDA-Public Use
  Company Number: 2003AP04386

PATIENT
  Age: 34 Year
  Sex: Male
  Weight: 111 kg

DRUGS (10)
  1. SEROQUEL [Suspect]
     Indication: SCHIZOPHRENIA
     Dosage: 600 MG DAILY PO
     Route: 048
     Dates: start: 20021224, end: 20031119
  2. DOGMATIL [Concomitant]
  3. AKINETON [Concomitant]
  4. LORAZEPAM [Concomitant]
  5. FLUMEZIN [Concomitant]
  6. PROHEPARUM [Concomitant]
  7. CHLORPROMAZINE HCL [Concomitant]
  8. SILECE [Concomitant]
  9. PROMETHAZINE HCL [Concomitant]
  10. ZYLORIC ^GLAXO WELLCOME^ [Concomitant]

REACTIONS (3)
  - CONVULSION [None]
  - DIABETES MELLITUS NON-INSULIN-DEPENDENT [None]
  - DIABETIC KETOACIDOSIS [None]
